FAERS Safety Report 16108664 (Version 1)
Quarter: 2019Q1

REPORT INFORMATION
  Report Type: Spontaneous
  Country: GR (occurrence: GR)
  Receive Date: 20190323
  Receipt Date: 20190323
  Transmission Date: 20190418
  Serious: Yes (Hospitalization, Other)
  Sender: FDA-Public Use
  Company Number: GR-ACCORD-114101

PATIENT
  Age: 49 Year
  Sex: Male

DRUGS (6)
  1. STREPTOMYCIN [Suspect]
     Active Substance: STREPTOMYCIN\STREPTOMYCIN SULFATE
     Indication: PERICARDITIS TUBERCULOUS
     Dosage: UNK, ALSO RECEIVED UNK DOSE ON UNK DATE ADDITIONALLY
     Route: 065
  2. METHOTREXATE. [Suspect]
     Active Substance: METHOTREXATE
     Indication: PSORIATIC ARTHROPATHY
     Dosage: INITIATED ONE YEAR EARLIER
  3. INFLIXIMAB [Suspect]
     Active Substance: INFLIXIMAB
     Indication: PSORIATIC ARTHROPATHY
     Dosage: 2-MONTHLY
  4. RIFAMPICIN [Suspect]
     Active Substance: RIFAMPIN
     Indication: PERICARDITIS TUBERCULOUS
     Dosage: UNK (CONTINUED FOR AN ADDITIONAL 7 MONTHS)
  5. PYRAZINAMIDE. [Suspect]
     Active Substance: PYRAZINAMIDE
     Indication: PERICARDITIS TUBERCULOUS
     Dosage: UNK
  6. ISONIAZID/ISONIAZID CALCIUM PYRUVINATE/ISONIAZID SODIUM GLUCURONATE [Suspect]
     Active Substance: ISONIAZID
     Indication: PERICARDITIS TUBERCULOUS
     Dosage: UNK (CONTINUED FOR AN ADDITIONAL 7 MONTHS)

REACTIONS (7)
  - Pericardial effusion [Recovered/Resolved]
  - Immune reconstitution inflammatory syndrome associated tuberculosis [Recovered/Resolved]
  - Pleural effusion [Recovered/Resolved]
  - Pericarditis tuberculous [Recovered/Resolved]
  - Necrosis [Recovered/Resolved]
  - Tuberculosis [Recovered/Resolved]
  - Lymph node tuberculosis [Recovered/Resolved]
